FAERS Safety Report 21049874 (Version 1)
Quarter: 2022Q3

REPORT INFORMATION
  Report Type: Other
  Country: US (occurrence: None)
  Receive Date: 20220706
  Receipt Date: 20220706
  Transmission Date: 20221026
  Serious: Yes (Hospitalization)
  Sender: FDA-Public Use
  Company Number: US-ROCHE-3113469

PATIENT
  Age: 74 Year
  Sex: Female
  Weight: 82.174 kg

DRUGS (2)
  1. ACTEMRA [Suspect]
     Active Substance: TOCILIZUMAB
     Indication: Giant cell arteritis
     Dosage: INJECTION
     Route: 058
     Dates: start: 20220525, end: 20220615
  2. ACTEMRA [Suspect]
     Active Substance: TOCILIZUMAB

REACTIONS (9)
  - Abdominal pain upper [Recovering/Resolving]
  - Faeces discoloured [Recovering/Resolving]
  - Ear pain [Recovering/Resolving]
  - Headache [Recovering/Resolving]
  - Fatigue [Recovering/Resolving]
  - Asthenia [Recovering/Resolving]
  - Peripheral swelling [Recovering/Resolving]
  - Unevaluable event [Recovering/Resolving]
  - Skin weeping [Unknown]

NARRATIVE: CASE EVENT DATE: 20220602
